FAERS Safety Report 10042348 (Version 2)
Quarter: 2014Q2

REPORT INFORMATION
  Report Type: Spontaneous
  Country: BR (occurrence: BR)
  Receive Date: 20140327
  Receipt Date: 20140530
  Transmission Date: 20141212
  Serious: Yes (Disabling, Other)
  Sender: FDA-Public Use
  Company Number: BR-ASTRAZENECA-2014SE19728

PATIENT
  Age: 10 Year
  Sex: Female
  Weight: 35 kg

DRUGS (4)
  1. SYMBICORT TURBUHALER [Suspect]
     Indication: BRONCHITIS
     Dosage: 160/4.5 MCG 2 INHALATIONS BID
     Route: 055
     Dates: start: 201303, end: 201403
  2. SYMBICORT TURBUHALER [Suspect]
     Indication: BRONCHITIS
     Dosage: 320/9 MCG DAILY
     Route: 055
  3. SYMBICORT TURBUHALER [Suspect]
     Indication: BRONCHITIS
     Dosage: 320/9 MCG 1 INHALATION ON EVERY OTHER DAY
     Route: 055
     Dates: end: 20140319
  4. SINGULAIR [Concomitant]
     Indication: BRONCHITIS
     Dates: start: 201305, end: 201310

REACTIONS (6)
  - Haematochezia [Recovered/Resolved]
  - Abdominal pain upper [Recovered/Resolved]
  - Rhinitis [Recovered/Resolved]
  - Sinusitis [Recovered/Resolved]
  - Off label use [Recovered/Resolved]
  - Intentional product misuse [Recovered/Resolved]
